FAERS Safety Report 8413645-9 (Version None)
Quarter: 2012Q2

REPORT INFORMATION
  Report Type: 
  Country: None (occurrence: None)
  Receive Date: 20120605
  Receipt Date: 20120521
  Transmission Date: 20120825
  Serious: Yes (Hospitalization)
  Sender: FDA-Public Use
  Company Number: JP-ROCHE-1071814

PATIENT
  Sex: Female

DRUGS (20)
  1. COPEGUS [Suspect]
     Route: 048
  2. KETOPROFEN [Concomitant]
     Dates: start: 20051203
  3. LOXONIN [Concomitant]
     Dates: start: 20110526, end: 20110609
  4. VANIPREVIR [Suspect]
     Indication: HEPATITIS C
     Dates: start: 20090926
  5. POVIDONE-IODINE (FORMULA 47) [Concomitant]
     Dates: start: 20110524
  6. FLOMOX [Concomitant]
     Dates: start: 20110525, end: 20110529
  7. MUCOSTA [Concomitant]
     Dates: start: 20110526, end: 20110609
  8. BROTIZOLAM [Concomitant]
     Dates: start: 20050730
  9. COPEGUS [Suspect]
     Indication: HEPATITIS C
     Route: 048
     Dates: start: 20091025, end: 20110211
  10. CEFAZOLIN SODIUM [Concomitant]
     Dates: start: 20110524
  11. FOSFOMYCIN CALCIUM [Concomitant]
     Dates: start: 20110524
  12. BETAMETHASONE [Concomitant]
     Dates: start: 20110524
  13. BETAMETHASONE SODIUM PHOSPHATE [Concomitant]
     Dates: start: 20110525, end: 20110730
  14. MYDRIN-P [Concomitant]
     Dates: start: 20090919, end: 20091024
  15. DEXTROSE [Concomitant]
  16. PEGASYS [Suspect]
     Indication: HEPATITIS C
     Route: 058
     Dates: start: 20091030
  17. DICLOD [Concomitant]
     Dates: start: 20110526, end: 20110730
  18. PHENYLEPHRINE HYDROCHLORIDE [Concomitant]
  19. AZULENE [Concomitant]
     Dates: start: 20091107, end: 20091108
  20. LIDOCAINE [Concomitant]
     Dates: start: 20110524

REACTIONS (1)
  - CATARACT [None]
